FAERS Safety Report 5074542-2 (Version None)
Quarter: 2006Q3

REPORT INFORMATION
  Report Type: 
  Country: None (occurrence: None)
  Receive Date: 20060803
  Receipt Date: 20060721
  Transmission Date: 20061208
  Serious: Yes (Other)
  Sender: FDA-Public Use
  Company Number: 2006090993

PATIENT
  Age: 63 Year
  Sex: Female
  Weight: 140.6151 kg

DRUGS (14)
  1. LYRICA [Suspect]
     Indication: NEUROPATHY
     Dosage: 75 MG (75 MG, 1 IN 1 D), UNKNOWN
     Route: 065
     Dates: start: 20060101
  2. DURAGESIC-100 [Suspect]
     Indication: PAIN
  3. GLIPIZIDE [Concomitant]
  4. SYNTHROID [Concomitant]
  5. ACURETIC (HYDROCHLOROTHIAZIDE, QUINAPRIL) [Concomitant]
  6. CLARINEX [Concomitant]
  7. ALBUTEROL [Concomitant]
  8. DITROPAN [Concomitant]
  9. ZOCOR [Concomitant]
  10. ULTRAM [Concomitant]
  11. LIDODERM PATCH (LIDOCAINE HYDROCHLORIDE) [Concomitant]
  12. ALL OTHER THERAPEUTIC PRODUCTS (ALL OTHER THERAPEUTIC PRODUCTS) [Concomitant]
  13. DRUG, UNSPECIFIED (DRUG, UNSPECIFIED) [Concomitant]
  14. STOOL SOFTENER (DOCUSATE SODIUM) [Concomitant]

REACTIONS (6)
  - CONSTIPATION [None]
  - INADEQUATE ANALGESIA [None]
  - ORAL INTAKE REDUCED [None]
  - SEDATION [None]
  - SOMNOLENCE [None]
  - WEIGHT INCREASED [None]
